FAERS Safety Report 17056636 (Version 1)
Quarter: 2019Q4

REPORT INFORMATION
  Report Type: Report from Study
  Country: US (occurrence: US)
  Receive Date: 20191121
  Receipt Date: 20191121
  Transmission Date: 20200122
  Serious: Yes (Hospitalization)
  Sender: FDA-Public Use
  Company Number: US-GILEAD-2019-0438640

PATIENT
  Age: 75 Year
  Sex: Female

DRUGS (22)
  1. AMBRISENTAN [Suspect]
     Active Substance: AMBRISENTAN
     Indication: ESSENTIAL HYPERTENSION
     Dosage: 5 MG, QD
     Route: 065
     Dates: start: 20190731
  2. CEVIMELINE. [Concomitant]
     Active Substance: CEVIMELINE
  3. OMEPRAZOLE. [Concomitant]
     Active Substance: OMEPRAZOLE
  4. OXYCODONE AND ACETAMINOPHEN [Concomitant]
     Active Substance: ACETAMINOPHEN\OXYCODONE HYDROCHLORIDE
  5. METOLAZONE. [Concomitant]
     Active Substance: METOLAZONE
  6. OLANZAPINE. [Concomitant]
     Active Substance: OLANZAPINE
  7. OPIUM [OPIUM ALKALOIDS TOTAL] [Concomitant]
  8. VITAMIN D [COLECALCIFEROL] [Concomitant]
     Active Substance: CHOLECALCIFEROL
  9. CHOLESTYRAMIN [Concomitant]
     Active Substance: CHOLESTYRAMINE
  10. LEVOTHYROXIN [Concomitant]
     Active Substance: LEVOTHYROXINE
  11. HYDROCHLOROTHIAZIDE. [Concomitant]
     Active Substance: HYDROCHLOROTHIAZIDE
  12. LACTULOSE. [Concomitant]
     Active Substance: LACTULOSE
  13. CYCLOBENZAPRINE. [Concomitant]
     Active Substance: CYCLOBENZAPRINE
  14. MYCAMINE [Concomitant]
     Active Substance: MICAFUNGIN SODIUM
  15. PROCRIT [Concomitant]
     Active Substance: ERYTHROPOIETIN
  16. DIPHENOXYLATE/ATROPINE [Concomitant]
     Active Substance: ATROPINE\DIPHENOXYLATE
  17. FUROSEMIDE. [Concomitant]
     Active Substance: FUROSEMIDE
  18. ONDANSETRON [Concomitant]
     Active Substance: ONDANSETRON
  19. AZATHIOPRINE. [Concomitant]
     Active Substance: AZATHIOPRINE
  20. HYDRALAZINE [Concomitant]
     Active Substance: HYDRALAZINE HYDROCHLORIDE
  21. MELOXICAM. [Concomitant]
     Active Substance: MELOXICAM
  22. VERAPAMIL [Concomitant]
     Active Substance: VERAPAMIL HYDROCHLORIDE

REACTIONS (1)
  - Back pain [Not Recovered/Not Resolved]

NARRATIVE: CASE EVENT DATE: 20191117
